FAERS Safety Report 9498842 (Version 2)
Quarter: 2013Q3

REPORT INFORMATION
  Report Type: Spontaneous
  Country: US (occurrence: None)
  Receive Date: 20130830
  Receipt Date: 20130905
  Transmission Date: 20140515
  Serious: Yes (Hospitalization)
  Sender: FDA-Public Use
  Company Number: USA/USA/13/0034329

PATIENT
  Age: 63 Year
  Sex: Female
  Weight: 73.8 kg

DRUGS (14)
  1. TACROLIMUS [Suspect]
     Indication: HEART TRANSPLANT
     Dosage: 1 MG, 1 IN  1 D, ORAL
     Route: 048
     Dates: start: 20130705, end: 20130820
  2. FEXOFENADINE HCL OTC (FEXOFENADINE) [Concomitant]
  3. CELLCEPT (MYCOPHENOLATE MOFETIL) TABLET [Concomitant]
  4. PRAVACHOL (PRAVASTIN SODIUM) [Concomitant]
  5. ALDACTONE (SPIRONOLACTONE) [Concomitant]
  6. TOPROL XL (METOPROLOL SUCCINATE) (100 MILLIGRAM) (METOPROLOL SUCCINATE) [Concomitant]
  7. COLACE [Concomitant]
  8. ACYCLOVIR (ACICLOVIR) (ACICLOVIR) [Concomitant]
  9. FUROSEMIDE (FUROSEMIDE) [Concomitant]
  10. ASPIRIN (ACETYLSALICYLIC ACID) [Concomitant]
  11. SYNTHROID (LEVOTHYROXINE SODIUM) [Concomitant]
  12. FOSAMAX (ALENDRONATE SODIUM) [Concomitant]
  13. HYDRALAZINE (HYDRALAZINE) [Concomitant]
  14. SERTRALINE (SERTRALINE) [Concomitant]

REACTIONS (8)
  - Mental status changes [None]
  - Respiratory arrest [None]
  - Aphagia [None]
  - Headache [None]
  - Nausea [None]
  - Vomiting [None]
  - Product substitution issue [None]
  - Product quality issue [None]
